FAERS Safety Report 7120522-2 (Version None)
Quarter: 2010Q4

REPORT INFORMATION
  Report Type: 
  Country: None (occurrence: None)
  Receive Date: 20101124
  Receipt Date: 20101115
  Transmission Date: 20110411
  Serious: Yes (Death)
  Sender: FDA-Public Use
  Company Number: VE-PFIZER INC-2010140482

PATIENT
  Age: 59 Year
  Sex: Female

DRUGS (4)
  1. LIPITOR [Suspect]
     Indication: HYPERCHOLESTEROLAEMIA
     Dosage: 40 MG, 1X/DAY
     Route: 048
     Dates: start: 20080101
  2. CORASPIN [Concomitant]
     Indication: ANTICOAGULANT THERAPY
     Dosage: 81 MG, 1X/DAY
     Route: 048
     Dates: start: 20070101
  3. PLAVIX [Concomitant]
     Indication: ANTICOAGULANT THERAPY
     Dosage: ONCE DAILY
     Route: 048
     Dates: start: 20070101
  4. VYTORIN [Concomitant]
     Indication: HYPERTENSION
     Dosage: UNK
     Route: 048
     Dates: start: 20070101

REACTIONS (1)
  - CARDIAC ARREST [None]
